FAERS Safety Report 20308824 (Version 3)
Quarter: 2022Q1

REPORT INFORMATION
  Report Type: Spontaneous
  Country: BR (occurrence: BR)
  Receive Date: 20220107
  Receipt Date: 20220217
  Transmission Date: 20220423
  Serious: Yes (Death, Life-Threatening, Hospitalization, Other)
  Sender: FDA-Public Use
  Company Number: BR-GLAXOSMITHKLINE-BR2021AMR243485

PATIENT
  Sex: Female
  Weight: 47 kg

DRUGS (1)
  1. ZEJULA [Suspect]
     Active Substance: NIRAPARIB
     Indication: Product used for unknown indication
     Dosage: UNK

REACTIONS (10)
  - Organ failure [Fatal]
  - Myelodysplastic syndrome [Fatal]
  - Sepsis [Fatal]
  - Myelosuppression [Fatal]
  - Leukopenia [Not Recovered/Not Resolved]
  - Colitis [Not Recovered/Not Resolved]
  - Thrombocytopenia [Unknown]
  - Nausea [Unknown]
  - Condition aggravated [Unknown]
  - Illness [Unknown]
